FAERS Safety Report 21119208 (Version 2)
Quarter: 2022Q3

REPORT INFORMATION
  Report Type: Spontaneous
  Country: GR (occurrence: GR)
  Receive Date: 20220722
  Receipt Date: 20220805
  Transmission Date: 20221027
  Serious: Yes (Other)
  Sender: FDA-Public Use
  Company Number: GR-009507513-2207GRC000573

PATIENT
  Sex: Male

DRUGS (2)
  1. AXITINIB [Suspect]
     Active Substance: AXITINIB
     Indication: Clear cell renal cell carcinoma
     Dosage: UNK
  2. PEMBROLIZUMAB [Suspect]
     Active Substance: PEMBROLIZUMAB
     Indication: Clear cell renal cell carcinoma
     Dosage: UNK

REACTIONS (1)
  - Tubulointerstitial nephritis [Recovered/Resolved]
